FAERS Safety Report 5743291-7 (Version None)
Quarter: 2008Q2

REPORT INFORMATION
  Report Type: 
  Country: None (occurrence: None)
  Receive Date: 20080519
  Receipt Date: 20080507
  Transmission Date: 20081010
  Serious: Yes (Other)
  Sender: FDA-Public Use
  Company Number: DE-PFIZER INC-2008018854

PATIENT
  Sex: Female
  Weight: 70 kg

DRUGS (1)
  1. LYRICA [Suspect]
     Indication: TRIGEMINAL NEURALGIA
     Dosage: DAILY DOSE:450MG
     Route: 048
     Dates: start: 20071207, end: 20080227

REACTIONS (6)
  - BREAST DISCOMFORT [None]
  - DERMATITIS ALLERGIC [None]
  - ERYTHEMA [None]
  - EYELID OEDEMA [None]
  - FLUID RETENTION [None]
  - LOCALISED OEDEMA [None]
